FAERS Safety Report 4403666-5 (Version None)
Quarter: 2004Q3

REPORT INFORMATION
  Report Type: 
  Country: None (occurrence: None)
  Receive Date: 20040721
  Receipt Date: 20040719
  Transmission Date: 20050211
  Serious: Yes (Life-Threatening)
  Sender: FDA-Public Use
  Company Number: FR-ROCHE-374695

PATIENT
  Age: 15 Month
  Sex: Male
  Weight: 10 kg

DRUGS (2)
  1. VALIUM [Suspect]
     Route: 054
     Dates: start: 20040516, end: 20040516
  2. NUREFLEX [Concomitant]

REACTIONS (4)
  - CAMPYLOBACTER INTESTINAL INFECTION [None]
  - COMA [None]
  - HAEMATOCHEZIA [None]
  - HYPOTONIA [None]
